FAERS Safety Report 4809205-9 (Version None)
Quarter: 2005Q4

REPORT INFORMATION
  Report Type: 
  Country: None (occurrence: None)
  Receive Date: 20051025
  Receipt Date: 20051013
  Transmission Date: 20060501
  Serious: Yes (Hospitalization)
  Sender: FDA-Public Use
  Company Number: JP-SANOFI-SYNTHELABO-A01200507116

PATIENT
  Age: 68 Year

DRUGS (1)
  1. MYSLEE [Suspect]
     Indication: INSOMNIA
     Route: 048
     Dates: start: 20050922, end: 20050922

REACTIONS (2)
  - AGGRESSION [None]
  - DELIRIUM [None]
